FAERS Safety Report 8430057-2 (Version None)
Quarter: 2012Q2

REPORT INFORMATION
  Report Type: 
  Country: None (occurrence: None)
  Receive Date: 20120612
  Receipt Date: 20120529
  Transmission Date: 20120825
  Serious: Yes (Other)
  Sender: FDA-Public Use
  Company Number: KR-ROCHE-1073699

PATIENT
  Sex: Female

DRUGS (3)
  1. CARBOPLATIN [Suspect]
     Indication: BREAST CANCER
  2. AVASTIN [Suspect]
     Indication: BREAST CANCER
  3. DOCETAXEL [Suspect]
     Indication: BREAST CANCER

REACTIONS (10)
  - VOMITING [None]
  - ANAEMIA [None]
  - GASTROINTESTINAL HAEMORRHAGE [None]
  - THROMBOCYTOPENIA [None]
  - IMPAIRED HEALING [None]
  - FEBRILE NEUTROPENIA [None]
  - NAUSEA [None]
  - STOMATITIS [None]
  - NEUTROPENIA [None]
  - ALANINE AMINOTRANSFERASE INCREASED [None]
